FAERS Safety Report 25527855 (Version 1)
Quarter: 2025Q3

REPORT INFORMATION
  Report Type: Spontaneous
  Country: US (occurrence: US)
  Receive Date: 20250708
  Receipt Date: 20250708
  Transmission Date: 20251021
  Serious: No
  Sender: AUROBINDO
  Company Number: US-AUROBINDO-AUR-APL-2024-061863

PATIENT
  Age: 77 Year
  Sex: Female
  Weight: 46.72 kg

DRUGS (1)
  1. CLOPIDOGREL [Suspect]
     Active Substance: CLOPIDOGREL BISULFATE
     Indication: Blood disorder
     Route: 065
     Dates: start: 20241126

REACTIONS (2)
  - Rash [Recovering/Resolving]
  - Product dose omission issue [Unknown]

NARRATIVE: CASE EVENT DATE: 20241128
